FAERS Safety Report 13217694 (Version 1)
Quarter: 2017Q1

REPORT INFORMATION
  Report Type: Other
  Country: US (occurrence: US)
  Receive Date: 20170210
  Receipt Date: 20170210
  Transmission Date: 20170428
  Serious: No
  Sender: FDA-Public Use
  Company Number: US-ACORDA-ACO_124910_2016

PATIENT
  Age: 78 Year
  Sex: Male
  Weight: 68.27 kg

DRUGS (6)
  1. AMPYRA [Suspect]
     Active Substance: DALFAMPRIDINE
     Indication: GAIT DISTURBANCE
     Dosage: 10 MG, BID
     Route: 048
     Dates: start: 201605, end: 201606
  2. DIGOXIN. [Concomitant]
     Active Substance: DIGOXIN
     Indication: PRODUCT USED FOR UNKNOWN INDICATION
     Dosage: UNK
     Route: 065
  3. ATRIAL FIBRILLATION MEDICATION [Concomitant]
     Indication: ATRIAL FIBRILLATION
     Dosage: UNK
  4. BLOOD THINNER MEDICATION [Concomitant]
     Indication: ANTICOAGULANT THERAPY
  5. VESICARE [Concomitant]
     Active Substance: SOLIFENACIN SUCCINATE
     Indication: PRODUCT USED FOR UNKNOWN INDICATION
     Dosage: UNK
     Route: 065
  6. AMPYRA [Suspect]
     Active Substance: DALFAMPRIDINE
     Indication: MULTIPLE SCLEROSIS
     Dosage: 10 MG, BID
     Route: 048
     Dates: start: 20160603, end: 20160624

REACTIONS (9)
  - Walking aid user [Not Recovered/Not Resolved]
  - Gait disturbance [Not Recovered/Not Resolved]
  - Muscle strain [Unknown]
  - Dizziness [Not Recovered/Not Resolved]
  - Condition aggravated [Unknown]
  - Fall [Unknown]
  - Cystitis [Recovered/Resolved]
  - Multiple sclerosis relapse [Unknown]
  - Drug ineffective [Not Recovered/Not Resolved]

NARRATIVE: CASE EVENT DATE: 201606
